FAERS Safety Report 23840971 (Version 5)
Quarter: 2025Q1

REPORT INFORMATION
  Report Type: Spontaneous
  Country: CA (occurrence: CA)
  Receive Date: 20240510
  Receipt Date: 20250311
  Transmission Date: 20250409
  Serious: Yes (Hospitalization, Other)
  Sender: CELLTRION
  Company Number: CA-CELLTRION INC.-2024CA009972

PATIENT

DRUGS (33)
  1. YUFLYMA [Suspect]
     Active Substance: ADALIMUMAB-AATY
     Indication: Rheumatoid arthritis
     Dates: start: 20231019, end: 20240122
  2. YUFLYMA [Suspect]
     Active Substance: ADALIMUMAB-AATY
     Dates: start: 20240122
  3. YUFLYMA [Suspect]
     Active Substance: ADALIMUMAB-AATY
  4. ALENDRONATE [Concomitant]
     Active Substance: ALENDRONATE SODIUM
     Dates: start: 20230821
  5. APIXABAN [Concomitant]
     Active Substance: APIXABAN
     Dates: start: 20240314
  6. APIXABAN [Concomitant]
     Active Substance: APIXABAN
  7. BISOPROLOL [Concomitant]
     Active Substance: BISOPROLOL
     Dates: start: 20240314
  8. BISOPROLOL [Concomitant]
     Active Substance: BISOPROLOL
  9. DUTASTERIDE [Concomitant]
     Active Substance: DUTASTERIDE
     Dates: start: 20230821
  10. DUTASTERIDE [Concomitant]
     Active Substance: DUTASTERIDE
  11. FOLIC ACID [Concomitant]
     Active Substance: FOLIC ACID
     Dates: start: 20230821
  12. FOLIC ACID [Concomitant]
     Active Substance: FOLIC ACID
  13. FUROSEMIDE [Concomitant]
     Active Substance: FUROSEMIDE
     Dates: start: 20240301
  14. FUROSEMIDE [Concomitant]
     Active Substance: FUROSEMIDE
  15. METHOTREXATE [Concomitant]
     Active Substance: METHOTREXATE
     Dates: end: 20230821
  16. METHOTREXATE [Concomitant]
     Active Substance: METHOTREXATE
     Dates: start: 20230821
  17. METHOTREXATE [Concomitant]
     Active Substance: METHOTREXATE
  18. METHOTREXATE [Concomitant]
     Active Substance: METHOTREXATE
  19. PREGABALIN [Concomitant]
     Active Substance: PREGABALIN
     Dates: start: 20230821
  20. PREGABALIN [Concomitant]
     Active Substance: PREGABALIN
  21. RAMIPRIL [Concomitant]
     Active Substance: RAMIPRIL
     Dates: start: 20230821, end: 202402
  22. RAMIPRIL [Concomitant]
     Active Substance: RAMIPRIL
  23. RINVOQ [Concomitant]
     Active Substance: UPADACITINIB
     Dates: start: 202306, end: 20231018
  24. RINVOQ [Concomitant]
     Active Substance: UPADACITINIB
  25. ROSUVASTATIN [Concomitant]
     Active Substance: ROSUVASTATIN
     Dates: start: 20230821
  26. ROSUVASTATIN [Concomitant]
     Active Substance: ROSUVASTATIN
  27. VENLAFAXINE [Concomitant]
     Active Substance: VENLAFAXINE HYDROCHLORIDE
     Dates: start: 202312
  28. VENLAFAXINE [Concomitant]
     Active Substance: VENLAFAXINE HYDROCHLORIDE
  29. CYANOCOBALAMIN [Concomitant]
     Active Substance: CYANOCOBALAMIN
     Dates: start: 202312
  30. VITAMIN D NOS [Concomitant]
     Active Substance: CHOLECALCIFEROL\ERGOCALCIFEROL
     Dates: start: 20230821
  31. VITAMIN D NOS [Concomitant]
     Active Substance: CHOLECALCIFEROL\ERGOCALCIFEROL
  32. ALENDRONATE SODIUM [Concomitant]
     Active Substance: ALENDRONATE SODIUM
  33. CYANOCOBALAMIN [Concomitant]
     Active Substance: CYANOCOBALAMIN

REACTIONS (3)
  - Mitral valve repair [Recovered/Resolved]
  - Mitral valve incompetence [Recovered/Resolved]
  - Drug ineffective [Not Recovered/Not Resolved]

NARRATIVE: CASE EVENT DATE: 20240125
